FAERS Safety Report 21943553 (Version 1)
Quarter: 2023Q1

REPORT INFORMATION
  Report Type: Spontaneous
  Country: US (occurrence: US)
  Receive Date: 20230202
  Receipt Date: 20230202
  Transmission Date: 20230418
  Serious: Yes (Other)
  Sender: FDA-Public Use
  Company Number: US-PADAGIS-2023PAD00085

PATIENT

DRUGS (2)
  1. GENTAMICIN SULFATE [Suspect]
     Active Substance: GENTAMICIN SULFATE
     Indication: Skin ulcer
     Dosage: UNK ONCE (USING ON AND OFF)
     Route: 065
     Dates: start: 202209
  2. GENTAMICIN SULFATE [Suspect]
     Active Substance: GENTAMICIN SULFATE
     Indication: Pseudomonas infection

REACTIONS (9)
  - Drug ineffective [Unknown]
  - Application site pain [Unknown]
  - Nausea [Unknown]
  - Rash macular [Unknown]
  - Insomnia [Unknown]
  - Swelling [Unknown]
  - Application site irritation [Unknown]
  - Product prescribing error [Unknown]
  - Product use in unapproved indication [Unknown]
